FAERS Safety Report 23908914 (Version 1)
Quarter: 2024Q2

REPORT INFORMATION
  Report Type: Spontaneous
  Country: US (occurrence: US)
  Receive Date: 20240528
  Receipt Date: 20240528
  Transmission Date: 20240716
  Serious: No
  Sender: FDA-Public Use
  Company Number: US-HIKMA PHARMACEUTICALS USA INC.-US-H14001-23-64802

PATIENT

DRUGS (1)
  1. TESTOSTERONE CYPIONATE [Suspect]
     Active Substance: TESTOSTERONE CYPIONATE
     Indication: Product used for unknown indication
     Dosage: 0.75 MILLILITER, WEEKLY
     Route: 065

REACTIONS (4)
  - Product dose omission issue [Unknown]
  - Malabsorption from injection site [Unknown]
  - Pain of skin [Unknown]
  - Injection site mass [Unknown]
